FAERS Safety Report 24898387 (Version 1)
Quarter: 2025Q1

REPORT INFORMATION
  Report Type: Spontaneous
  Country: US (occurrence: US)
  Receive Date: 20250129
  Receipt Date: 20250129
  Transmission Date: 20250409
  Serious: Yes (Other)
  Sender: HETERO
  Company Number: US-AMAROX PHARMA-HET2025US00351

PATIENT
  Age: 57 Year
  Sex: Male

DRUGS (3)
  1. TADALAFIL [Interacting]
     Active Substance: TADALAFIL
     Indication: Pulmonary arterial hypertension
     Route: 065
  2. AMYL NITRITE [Interacting]
     Active Substance: AMYL NITRITE
     Indication: Product used for unknown indication
     Route: 065
  3. METHAMPHETAMINE [Concomitant]
     Active Substance: METHAMPHETAMINE
     Indication: Product used for unknown indication
     Route: 065

REACTIONS (2)
  - Syncope [Unknown]
  - Labelled drug-drug interaction issue [Unknown]
